FAERS Safety Report 12597941 (Version 2)
Quarter: 2016Q3

REPORT INFORMATION
  Report Type: Report from Study
  Country: US (occurrence: US)
  Receive Date: 20160726
  Receipt Date: 20160926
  Transmission Date: 20161109
  Serious: Yes (Other)
  Sender: FDA-Public Use
  Company Number: US-GILEAD-2016-0225164

PATIENT
  Age: 53 Year
  Sex: Female

DRUGS (1)
  1. AMBRISENTAN [Suspect]
     Active Substance: AMBRISENTAN
     Indication: PRODUCT USED FOR UNKNOWN INDICATION
     Dosage: 10 MG, QD
     Route: 065
     Dates: start: 20160407

REACTIONS (6)
  - Fatigue [Unknown]
  - Cardiac valve disease [Unknown]
  - Anal cancer [Unknown]
  - Pain [Not Recovered/Not Resolved]
  - Vaginal cancer recurrent [Unknown]
  - Vulval cancer [Unknown]
